FAERS Safety Report 4304813-6 (Version None)
Quarter: 2004Q1

REPORT INFORMATION
  Report Type: 
  Country: None (occurrence: None)
  Receive Date: 20040225
  Receipt Date: 20040225
  Transmission Date: 20041129
  Serious: Yes (Hospitalization, Other)
  Sender: FDA-Public Use
  Company Number: None

PATIENT
  Age: 71 Year
  Sex: Female
  Weight: 54.4316 kg

DRUGS (4)
  1. LETRAZOLE [Suspect]
     Dosage: 25 MG DAILY
     Dates: start: 20020101, end: 20040224
  2. TOPRIL [Concomitant]
  3. TIAZAC [Concomitant]
  4. XANAX [Concomitant]

REACTIONS (3)
  - ADENOMA BENIGN [None]
  - METASTASIS [None]
  - SARCOMA [None]
